FAERS Safety Report 6949977-0 (Version None)
Quarter: 2010Q3

REPORT INFORMATION
  Report Type: 
  Country: None (occurrence: None)
  Receive Date: 20100828
  Receipt Date: 20100121
  Transmission Date: 20110219
  Serious: No
  Sender: FDA-Public Use
  Company Number: US-ABBOTT-10P-163-0621801-00

PATIENT
  Age: 61 Year
  Sex: Female
  Weight: 81.72 kg

DRUGS (3)
  1. NIASPAN [Suspect]
     Indication: BLOOD CHOLESTEROL INCREASED
     Route: 048
     Dates: start: 20091201
  2. BONIVA [Concomitant]
     Indication: PRODUCT USED FOR UNKNOWN INDICATION
  3. ZITHROMAX [Concomitant]
     Indication: ANTIBIOTIC PROPHYLAXIS
     Dates: start: 20100117, end: 20100119

REACTIONS (3)
  - FLUSHING [None]
  - TOOTH DISORDER [None]
  - TOOTHACHE [None]
